FAERS Safety Report 20174557 (Version 1)
Quarter: 2021Q4

REPORT INFORMATION
  Report Type: Spontaneous
  Country: PT (occurrence: PT)
  Receive Date: 20211213
  Receipt Date: 20211213
  Transmission Date: 20220303
  Serious: Yes (Other)
  Sender: FDA-Public Use
  Company Number: PT-AUROBINDO-AUR-APL-2021-050863

PATIENT
  Age: 22 Year
  Sex: Female
  Weight: 56 kg

DRUGS (1)
  1. LIDOCAINE [Suspect]
     Active Substance: LIDOCAINE
     Indication: Internal fixation of fracture
     Dosage: 30 MILLILITER
     Route: 058

REACTIONS (5)
  - Local anaesthetic systemic toxicity [Unknown]
  - Dysgeusia [Unknown]
  - Supraventricular tachycardia [Unknown]
  - Vision blurred [Unknown]
  - Agitation [Unknown]
